FAERS Safety Report 4839086-9 (Version None)
Quarter: 2005Q4

REPORT INFORMATION
  Report Type: 
  Country: None (occurrence: None)
  Receive Date: 20051129
  Receipt Date: 20051118
  Transmission Date: 20060501
  Serious: Yes (Hospitalization)
  Sender: FDA-Public Use
  Company Number: US-GLAXOSMITHKLINE-A0583074A

PATIENT
  Sex: Female

DRUGS (1)
  1. PAXIL [Suspect]
     Indication: DRUG USE FOR UNKNOWN INDICATION
     Route: 065

REACTIONS (6)
  - AGITATION [None]
  - CRYING [None]
  - DRUG WITHDRAWAL SYNDROME [None]
  - PANCREATITIS [None]
  - PARAESTHESIA [None]
  - SUICIDAL IDEATION [None]
